FAERS Safety Report 25556614 (Version 1)
Quarter: 2025Q3

REPORT INFORMATION
  Report Type: Spontaneous
  Country: US (occurrence: US)
  Receive Date: 20250715
  Receipt Date: 20250715
  Transmission Date: 20251020
  Serious: No
  Sender: NOVO NORDISK
  Company Number: US-NOVOPROD-1371074

PATIENT
  Sex: Female

DRUGS (2)
  1. OZEMPIC [Suspect]
     Active Substance: SEMAGLUTIDE
     Indication: Type 2 diabetes mellitus
  2. OZEMPIC [Suspect]
     Active Substance: SEMAGLUTIDE
     Indication: Weight control
     Dosage: 0.5MG ONCE WEEKLY
     Route: 058
     Dates: start: 20241009

REACTIONS (4)
  - Rectal spasm [Unknown]
  - Constipation [Recovering/Resolving]
  - Wrong technique in product usage process [Unknown]
  - Product communication issue [Unknown]
